FAERS Safety Report 25302630 (Version 3)
Quarter: 2025Q2

REPORT INFORMATION
  Report Type: Spontaneous
  Country: DE (occurrence: DE)
  Receive Date: 20250512
  Receipt Date: 20250611
  Transmission Date: 20250716
  Serious: No
  Sender: PFIZER
  Company Number: DE-PFIZER INC-202500098078

PATIENT

DRUGS (1)
  1. MEDROXYPROGESTERONE ACETATE [Suspect]
     Active Substance: MEDROXYPROGESTERONE ACETATE

REACTIONS (1)
  - Device leakage [Unknown]
